FAERS Safety Report 25190017 (Version 5)
Quarter: 2025Q4

REPORT INFORMATION
  Report Type: Report from Study
  Country: US (occurrence: None)
  Receive Date: 20250411
  Receipt Date: 20251114
  Transmission Date: 20260118
  Serious: Yes (Hospitalization, Other)
  Sender: UCB
  Company Number: US-UCBSA-2025012294

PATIENT
  Age: 3 Year
  Weight: 20.6 kg

DRUGS (16)
  1. FENFLURAMINE [Suspect]
     Active Substance: FENFLURAMINE
     Indication: Severe myoclonic epilepsy of infancy
     Dosage: 1.4 MILLILITER, 2X/DAY (BID)
  2. FENFLURAMINE [Suspect]
     Active Substance: FENFLURAMINE
     Dosage: 1.5 MILLILITER, 2X/DAY (BID)
  3. FENFLURAMINE [Suspect]
     Active Substance: FENFLURAMINE
     Dosage: 1.6 MILLILITER, 2X/DAY (BID)
  4. FENFLURAMINE [Suspect]
     Active Substance: FENFLURAMINE
     Dosage: 1.8 MILLILITER, 3X/DAY (TID)
  5. FENFLURAMINE [Suspect]
     Active Substance: FENFLURAMINE
     Dosage: 3.2 MILLIGRAM PER DAY
  6. DIAZEPAM [Concomitant]
     Active Substance: DIAZEPAM
     Indication: Product used for unknown indication
     Dosage: AS DIRECTED BUCCALLY, EMERGENCY MEDICATION AS NEEDED
  7. IBUPROFEN [Concomitant]
     Active Substance: IBUPROFEN
     Indication: Product used for unknown indication
     Dosage: AS NEEDED
  8. TYLENOL [Concomitant]
     Active Substance: ACETAMINOPHEN
     Indication: Product used for unknown indication
     Dosage: AS NEEDED
  9. EPIDIOLEX [Concomitant]
     Active Substance: CANNABIDIOL
     Indication: Product used for unknown indication
     Dosage: 1.7 MILLILITER, 2X/DAY (BID)
  10. EPIDIOLEX [Concomitant]
     Active Substance: CANNABIDIOL
     Dosage: 1.8 MILLILITER, 2X/DAY (BID)
  11. DIVALPROEX SODIUM [Concomitant]
     Active Substance: DIVALPROEX SODIUM
     Indication: Product used for unknown indication
     Dosage: 1 TABLET TWICE DAILY
  12. CLONAZEPAM [Concomitant]
     Active Substance: CLONAZEPAM
     Indication: Product used for unknown indication
     Dosage: 0.125 MILLIGRAM
  13. CLOBAZAM [Concomitant]
     Active Substance: CLOBAZAM
     Indication: Product used for unknown indication
     Dosage: 2.5 MILLILITER, 2X/DAY (BID)
  14. CLOBAZAM [Concomitant]
     Active Substance: CLOBAZAM
     Dosage: 3.5 ML IN MORNING AND 4.5 ML IN EVEING
  15. VALTOCO [Concomitant]
     Active Substance: DIAZEPAM
     Indication: Product used for unknown indication
     Dosage: 10 MILLIGRAM, AS NEEDED
  16. LEVETIRACETAM [Concomitant]
     Active Substance: LEVETIRACETAM
     Indication: Product used for unknown indication
     Dosage: 2.5 MILLILITER, 3X/DAY (TID)

REACTIONS (9)
  - Influenza [Not Recovered/Not Resolved]
  - Seizure [Not Recovered/Not Resolved]
  - Petit mal epilepsy [Recovered/Resolved]
  - Vagal nerve stimulator implantation [Unknown]
  - Adenotonsillectomy [Unknown]
  - Restlessness [Recovered/Resolved]
  - Muscle twitching [Recovered/Resolved]
  - Screaming [Recovered/Resolved]
  - Incorrect dose administered [Unknown]
